FAERS Safety Report 7792942-4 (Version None)
Quarter: 2011Q4

REPORT INFORMATION
  Report Type: 
  Country: None (occurrence: None)
  Receive Date: 20111003
  Receipt Date: 20110922
  Transmission Date: 20120403
  Serious: Yes (Hospitalization, Other)
  Sender: FDA-Public Use
  Company Number: PHHY2011BR84701

PATIENT
  Age: 39 Year
  Sex: Male

DRUGS (1)
  1. CARBAMAZEPINE [Suspect]
     Dosage: 1 TABLET IN THE MORNING AND 1 TABLET AT 10:00PM DAILY

REACTIONS (7)
  - ANXIETY [None]
  - SYNCOPE [None]
  - FALL [None]
  - HEAD INJURY [None]
  - AGGRESSION [None]
  - NERVOUSNESS [None]
  - ONYCHOPHAGIA [None]
